FAERS Safety Report 17147930 (Version 1)
Quarter: 2019Q4

REPORT INFORMATION
  Report Type: Spontaneous
  Country: US (occurrence: US)
  Receive Date: 20191212
  Receipt Date: 20191212
  Transmission Date: 20200122
  Serious: Yes (Other)
  Sender: FDA-Public Use
  Company Number: US-PURDUE PHARMA-GBR-2019-0073612

PATIENT
  Age: 27 Year
  Sex: Female

DRUGS (4)
  1. HEROIN [Suspect]
     Active Substance: DIAMORPHINE
     Indication: SUBSTANCE ABUSE
     Dosage: UNK
     Route: 065
  2. NICOTIANA TABACUM [Suspect]
     Active Substance: TOBACCO LEAF
     Indication: PRODUCT USED FOR UNKNOWN INDICATION
     Route: 065
  3. BUPRENORPHINE. [Suspect]
     Active Substance: BUPRENORPHINE
     Indication: SUBSTANCE ABUSE
     Dosage: UNK
     Route: 065
  4. GABAPENTIN. [Suspect]
     Active Substance: GABAPENTIN
     Indication: SUBSTANCE ABUSE
     Dosage: UNK
     Route: 065

REACTIONS (5)
  - Drug dependence, antepartum [Unknown]
  - Substance abuse [Unknown]
  - Premature labour [Unknown]
  - Substance dependence [Unknown]
  - Exposure during pregnancy [Unknown]
